FAERS Safety Report 23040755 (Version 2)
Quarter: 2025Q1

REPORT INFORMATION
  Report Type: Spontaneous
  Country: FR (occurrence: FR)
  Receive Date: 20231006
  Receipt Date: 20250121
  Transmission Date: 20250408
  Serious: Yes (Death, Hospitalization)
  Sender: VERTEX
  Company Number: FR-VERTEX PHARMACEUTICALS-2023-014743

PATIENT
  Age: 4 Year
  Sex: Male

DRUGS (1)
  1. ORKAMBI [Suspect]
     Active Substance: IVACAFTOR\LUMACAFTOR
     Indication: Pulmonary fibrosis
     Route: 048

REACTIONS (2)
  - Adenovirus infection [Fatal]
  - Off label use [Unknown]
